FAERS Safety Report 16872736 (Version 1)
Quarter: 2019Q4

REPORT INFORMATION
  Report Type: Spontaneous
  Country: DE (occurrence: DE)
  Receive Date: 20191001
  Receipt Date: 20191001
  Transmission Date: 20200122
  Serious: Yes (Hospitalization, Other)
  Sender: FDA-Public Use
  Company Number: DE-BAYER-2019-171680

PATIENT
  Age: 26 Year
  Sex: Female
  Weight: 58 kg

DRUGS (1)
  1. JAYDESS [Suspect]
     Active Substance: LEVONORGESTREL
     Indication: CONTRACEPTION
     Dosage: UNK
     Route: 015
     Dates: start: 20170619, end: 20190821

REACTIONS (10)
  - Device dislocation [Recovered/Resolved]
  - Vaginal haemorrhage [Recovered/Resolved]
  - Ectopic pregnancy with contraceptive device [Recovered/Resolved]
  - Abortion of ectopic pregnancy [Recovered/Resolved]
  - Peritoneal haemorrhage [Recovered/Resolved]
  - Salpingitis [Recovered/Resolved]
  - Menorrhagia [None]
  - Drug ineffective [None]
  - Adnexa uteri cyst [None]
  - Abdominal pain lower [Recovered/Resolved]

NARRATIVE: CASE EVENT DATE: 201708
